FAERS Safety Report 7574156-6 (Version None)
Quarter: 2011Q2

REPORT INFORMATION
  Report Type: 
  Country: None (occurrence: None)
  Receive Date: 20110627
  Receipt Date: 20110616
  Transmission Date: 20111010
  Serious: Yes (Other)
  Sender: FDA-Public Use
  Company Number: PHHY2010JP58111

PATIENT
  Sex: Male

DRUGS (9)
  1. TASIGNA [Suspect]
     Dosage: 200 MG, UNK
     Route: 048
     Dates: start: 20100302, end: 20100302
  2. TASIGNA [Suspect]
     Dosage: 200 MG, UNK
     Route: 048
     Dates: start: 20100326, end: 20100326
  3. TASIGNA [Suspect]
     Dosage: 200 MG, 3 TIMES A WEEK
     Route: 048
  4. TASIGNA [Suspect]
     Dosage: 200 MG, UNK
     Route: 048
     Dates: start: 20100309, end: 20100309
  5. TASIGNA [Suspect]
     Dosage: 200 MG, UNK
     Route: 048
     Dates: start: 20100316, end: 20100316
  6. CELESTAMINE TAB [Concomitant]
     Indication: PROPHYLAXIS
     Dosage: 1 DF, UNK
     Route: 048
     Dates: start: 20080927
  7. TASIGNA [Suspect]
     Indication: CHRONIC MYELOID LEUKAEMIA
     Dosage: 400 MG, QD
     Route: 048
     Dates: start: 20090925, end: 20091013
  8. TASIGNA [Suspect]
     Dosage: 200 MG, QD
     Dates: start: 20091220, end: 20100216
  9. TASIGNA [Suspect]
     Dosage: 200 MG, UNK
     Route: 048
     Dates: start: 20100223, end: 20100223

REACTIONS (3)
  - PLATELET COUNT DECREASED [None]
  - MELAENA [None]
  - HYPERURICAEMIA [None]
